FAERS Safety Report 5578720-5 (Version None)
Quarter: 2007Q4

REPORT INFORMATION
  Report Type: 
  Country: None (occurrence: None)
  Receive Date: 20071227
  Receipt Date: 20071227
  Transmission Date: 20080405
  Serious: Yes (Other)
  Sender: FDA-Public Use
  Company Number: None

PATIENT
  Age: 61 Year
  Sex: Female
  Weight: 108.8633 kg

DRUGS (1)
  1. CEPHALEXIN [Suspect]
     Indication: POSTOPERATIVE WOUND COMPLICATION
     Dosage: 500 MG 2 PER DAY MOUTH
     Route: 048
     Dates: start: 20071120, end: 20071125

REACTIONS (2)
  - FEELING HOT [None]
  - RASH PRURITIC [None]
